FAERS Safety Report 5238478-6 (Version None)
Quarter: 2007Q1

REPORT INFORMATION
  Report Type: 
  Country: None (occurrence: None)
  Receive Date: 20070215
  Receipt Date: 20070213
  Transmission Date: 20070707
  Serious: Yes (Disabling)
  Sender: FDA-Public Use
  Company Number: 2007UW01929

PATIENT
  Age: 58 Year
  Sex: Male
  Weight: 126.8 kg

DRUGS (11)
  1. CRESTOR [Suspect]
     Indication: BLOOD CHOLESTEROL INCREASED
     Route: 048
     Dates: start: 20070112, end: 20070201
  2. NEXIUM [Concomitant]
  3. AVAPRO [Concomitant]
  4. ULTRACET [Concomitant]
  5. CORGARD [Concomitant]
  6. POTASSIUM ACETATE [Concomitant]
  7. CELEBREX [Concomitant]
  8. BENTYL [Concomitant]
  9. CLARINEX [Concomitant]
  10. PROTONIX [Concomitant]
  11. GLUCOPHAGE [Concomitant]

REACTIONS (7)
  - ABDOMINAL DISTENSION [None]
  - BLADDER PAIN [None]
  - FULL BLOOD COUNT ABNORMAL [None]
  - INVESTIGATION ABNORMAL [None]
  - URINARY RETENTION [None]
  - URINE COLOUR ABNORMAL [None]
  - URINE OUTPUT DECREASED [None]
